FAERS Safety Report 6529183-4 (Version None)
Quarter: 2010Q1

REPORT INFORMATION
  Report Type: 
  Country: None (occurrence: None)
  Receive Date: 20100104
  Receipt Date: 20091218
  Transmission Date: 20100710
  Serious: Yes (Hospitalization, Other)
  Sender: FDA-Public Use
  Company Number: AUR-APL-2009-01533

PATIENT
  Age: 88 Year
  Sex: Female

DRUGS (6)
  1. GLUCOPHAGE [Suspect]
     Indication: TYPE 2 DIABETES MELLITUS
     Dosage: 500MG, ORAL
     Route: 048
  2. ENALAPRIL MALEATE [Suspect]
     Indication: CARDIAC FAILURE
     Dosage: 5MG, ORAL
     Route: 048
  3. SOLOSA TABLET (GLIMEPIRIDE) [Suspect]
     Indication: TYPE 2 DIABETES MELLITUS
     Dosage: 2MG, ORAL
     Route: 048
     Dates: start: 20091026, end: 20091029
  4. PREDNISONE (DELTOCORTENE) TABLETS [Concomitant]
  5. THEOPHYLLINE (RESPICUR) [Concomitant]
  6. RABEPRAZOLE SODIUM (PARIET) [Concomitant]

REACTIONS (2)
  - BLOOD PRESSURE INCREASED [None]
  - HYPOGLYCAEMIC COMA [None]
